FAERS Safety Report 4567299-2 (Version None)
Quarter: 2005Q1

REPORT INFORMATION
  Report Type: 
  Country: None (occurrence: None)
  Receive Date: 20050127
  Receipt Date: 20050113
  Transmission Date: 20050727
  Serious: Yes (Death)
  Sender: FDA-Public Use
  Company Number: 2005-BP-00487BP

PATIENT
  Age: 42 Year
  Sex: Female

DRUGS (1)
  1. MOBIC [Suspect]
     Dosage: PO
     Route: 048
     Dates: start: 20040101

REACTIONS (2)
  - CHEST PAIN [None]
  - SUDDEN DEATH [None]
